FAERS Safety Report 10575389 (Version 2)
Quarter: 2015Q1

REPORT INFORMATION
  Report Type: Spontaneous
  Country: AT (occurrence: AT)
  Receive Date: 20141111
  Receipt Date: 20150112
  Transmission Date: 20150720
  Serious: Yes (Hospitalization)
  Sender: FDA-Public Use
  Company Number: AT-BIOGENIDEC-2014BI115664

PATIENT
  Sex: Female

DRUGS (1)
  1. TYSABRI [Suspect]
     Active Substance: NATALIZUMAB
     Indication: MULTIPLE SCLEROSIS
     Route: 042

REACTIONS (5)
  - Psychotic disorder [Unknown]
  - Hypomania [Unknown]
  - Depression [Unknown]
  - Multiple sclerosis relapse [Unknown]
  - Intra-uterine contraceptive device [Unknown]

NARRATIVE: CASE EVENT DATE: 201406
